FAERS Safety Report 23197100 (Version 1)
Quarter: 2023Q4

REPORT INFORMATION
  Report Type: Spontaneous
  Country: JP (occurrence: None)
  Receive Date: 20231117
  Receipt Date: 20231117
  Transmission Date: 20240110
  Serious: Yes (Other)
  Sender: FDA-Public Use
  Company Number: 2023A260390

PATIENT
  Age: 72 Year
  Sex: Male

DRUGS (3)
  1. DURVALUMAB [Suspect]
     Active Substance: DURVALUMAB
     Indication: Lung adenocarcinoma stage III
     Dosage: 10 MG/KG EVERY 15 DAYS - 3 DOSES IN SUM
     Route: 042
     Dates: start: 201909, end: 201910
  2. OSIMERTINIB [Suspect]
     Active Substance: OSIMERTINIB
     Indication: Lung adenocarcinoma stage III
     Route: 048
     Dates: start: 202007
  3. OSIMERTINIB [Suspect]
     Active Substance: OSIMERTINIB
     Indication: Lung adenocarcinoma stage III
     Route: 048

REACTIONS (5)
  - Malignant neoplasm progression [Unknown]
  - Pneumonitis [Unknown]
  - Drug resistance [Unknown]
  - Long QT syndrome [Unknown]
  - Acquired gene mutation [Unknown]

NARRATIVE: CASE EVENT DATE: 20191001
